FAERS Safety Report 5478229-3 (Version None)
Quarter: 2007Q4

REPORT INFORMATION
  Report Type: 
  Country: None (occurrence: None)
  Receive Date: 20071005
  Receipt Date: 20071003
  Transmission Date: 20080405
  Serious: Yes (Life-Threatening, Hospitalization)
  Sender: FDA-Public Use
  Company Number: US-ASTRAZENECA-2007UW23050

PATIENT
  Age: 47 Year
  Sex: Female
  Weight: 57.1 kg

DRUGS (30)
  1. METOPROLOL SUCCINATE [Suspect]
     Indication: ANGINA PECTORIS
     Route: 048
     Dates: start: 20070718, end: 20070723
  2. METOPROLOL SUCCINATE [Suspect]
     Indication: HYPERTENSION
     Route: 048
     Dates: start: 20070718, end: 20070723
  3. METOPROLOL SUCCINATE [Suspect]
     Indication: CARDIAC FAILURE CONGESTIVE
     Route: 048
     Dates: start: 20070718, end: 20070723
  4. CANGRELOR CODE NOT BROKEN [Suspect]
     Indication: PERCUTANEOUS CORONARY INTERVENTION
  5. CLOPIDOGREL CODE NOT BROKEN [Suspect]
     Indication: PERCUTANEOUS CORONARY INTERVENTION
  6. GLYCERYL TRINITRATE D [Suspect]
     Indication: ANGINA PECTORIS
     Route: 042
     Dates: start: 20070719, end: 20070719
  7. ISOSORBIDE MONONITRATE [Suspect]
     Indication: ANGINA PECTORIS
     Route: 048
     Dates: start: 20070718, end: 20070723
  8. HYDROMORPHONE HCL [Concomitant]
     Dates: start: 20070718, end: 20070727
  9. MIDAZOLAM HYDROCHLORIDE [Concomitant]
     Dates: start: 20070718, end: 20070718
  10. ONDANSETRON [Concomitant]
     Dates: start: 20070718, end: 20070802
  11. INTEGRILIN [Concomitant]
     Dates: start: 20070718, end: 20070718
  12. PHENYLEPHRINE HROCHLORIDE [Concomitant]
     Dates: start: 20070718, end: 20070718
  13. ASPIRIN [Concomitant]
     Dates: start: 20070718
  14. HEPARIN [Concomitant]
     Dates: start: 20070718, end: 20070718
  15. GLYCERYL TRINITRATE [Concomitant]
     Dates: start: 20070718, end: 20070802
  16. ALPRAZOLAM [Concomitant]
     Dates: start: 20070718, end: 20070802
  17. LEVOSALBUTAMOL [Concomitant]
     Dates: start: 20070722, end: 20070723
  18. MAGNESIUM SULFATE [Concomitant]
     Dates: start: 20070718, end: 20070718
  19. PROMETHAZINE HCL [Concomitant]
     Dates: start: 20070718, end: 20070718
  20. POTASSIUM CHLORIDE [Concomitant]
     Dates: start: 20070718, end: 20070718
  21. NICOTINE [Concomitant]
     Route: 061
     Dates: start: 20070721, end: 20070802
  22. PETHIDINE [Concomitant]
     Dates: start: 20070718, end: 20070718
  23. KETOROLAC [Concomitant]
     Dates: start: 20070720, end: 20070727
  24. PANTOPRAZOLE SODIUM [Concomitant]
     Dates: start: 20070718, end: 20070730
  25. SIMVASTATIN [Concomitant]
     Dates: start: 20070719
  26. LIDOCAINE [Concomitant]
     Dates: start: 20070718, end: 20070718
  27. CLOPIDOGREL [Concomitant]
     Dates: start: 20070719, end: 20070721
  28. FUROSEMIDE [Concomitant]
     Dates: start: 20070722, end: 20070722
  29. DILTIAZEM [Concomitant]
     Dates: start: 20070720, end: 20070802
  30. PARACETAMOL [Concomitant]
     Dates: start: 20070718, end: 20070802

REACTIONS (3)
  - ATRIOVENTRICULAR BLOCK [None]
  - CARDIAC ARREST [None]
  - HYPOTENSION [None]
